FAERS Safety Report 10471235 (Version 5)
Quarter: 2016Q4

REPORT INFORMATION
  Report Type: Spontaneous
  Country: US (occurrence: US)
  Receive Date: 20140923
  Receipt Date: 20161019
  Transmission Date: 20170206
  Serious: Yes (Death, Hospitalization, Other)
  Sender: FDA-Public Use
  Company Number: US-MERCK-1409USA010758

PATIENT
  Sex: Male
  Weight: 77.98 kg

DRUGS (1)
  1. JANUVIA [Suspect]
     Active Substance: SITAGLIPTIN PHOSPHATE
     Indication: TYPE 2 DIABETES MELLITUS
     Dosage: 100 MG, DAILY
     Route: 048
     Dates: start: 20110511, end: 20130913

REACTIONS (21)
  - Adenocarcinoma pancreas [Unknown]
  - Vision blurred [Unknown]
  - Gastrooesophageal reflux disease [Unknown]
  - Inspiratory capacity decreased [Unknown]
  - Failure to thrive [Fatal]
  - Abdominal mass [Fatal]
  - Hypertension [Unknown]
  - Diabetic neuropathy [Unknown]
  - Hypoaesthesia [Unknown]
  - Abnormal loss of weight [Unknown]
  - Dyspnoea [Unknown]
  - Gastrointestinal ulcer [Unknown]
  - Pleural effusion [Unknown]
  - Atelectasis [Unknown]
  - Constipation [Unknown]
  - Paracentesis [Unknown]
  - Depression [Unknown]
  - Muscular weakness [Unknown]
  - Laceration [Unknown]
  - Ascites [Unknown]
  - Nerve compression [Unknown]

NARRATIVE: CASE EVENT DATE: 2011
